FAERS Safety Report 18855799 (Version 2)
Quarter: 2021Q1

REPORT INFORMATION
  Report Type: Spontaneous
  Country: US (occurrence: US)
  Receive Date: 20210206
  Receipt Date: 20210212
  Transmission Date: 20210420
  Serious: Yes (Other)
  Sender: FDA-Public Use
  Company Number: US-MACLEODS PHARMACEUTICALS US LTD-MAC2021029994

PATIENT

DRUGS (3)
  1. OLANZAPINE 5 MG [Suspect]
     Active Substance: OLANZAPINE
     Indication: SCHIZOPHRENIA
     Dosage: 5 MILLIGRAM, BID
     Route: 048
     Dates: start: 202005
  2. OLANZAPINE 5 MG [Suspect]
     Active Substance: OLANZAPINE
     Indication: PSYCHOTIC DISORDER
  3. OLANZAPINE 5 MG [Suspect]
     Active Substance: OLANZAPINE
     Indication: BIPOLAR DISORDER

REACTIONS (10)
  - Pain [Unknown]
  - Physical assault [Unknown]
  - Seizure [Unknown]
  - Anxiety [Unknown]
  - Hypersensitivity [Unknown]
  - Hallucination [Unknown]
  - Suicide attempt [Unknown]
  - Mania [Unknown]
  - Aggression [Unknown]
  - Muscle twitching [Unknown]
